FAERS Safety Report 9607626 (Version 1)
Quarter: 2013Q4

REPORT INFORMATION
  Report Type: Report from Study
  Country: NL (occurrence: NL)
  Receive Date: 20131009
  Receipt Date: 20131009
  Transmission Date: 20140711
  Serious: Yes (Other)
  Sender: FDA-Public Use
  Company Number: PHHY2013NL112654

PATIENT
  Age: 52 Year
  Sex: Female

DRUGS (2)
  1. ACLASTA [Suspect]
     Indication: OSTEOPOROSIS
     Dosage: 5 MG/100ML (1 PER 52 WEEKS)
     Route: 042
     Dates: start: 20120625
  2. ACLASTA [Suspect]
     Dosage: 5 MG/100ML (1 PER 52 WEEKS)
     Route: 042
     Dates: start: 20131004

REACTIONS (2)
  - Urinary bladder polyp [Recovering/Resolving]
  - Small intestinal perforation [Unknown]
